FAERS Safety Report 22870323 (Version 2)
Quarter: 2024Q1

REPORT INFORMATION
  Report Type: Spontaneous
  Country: US (occurrence: US)
  Receive Date: 20230827
  Receipt Date: 20240103
  Transmission Date: 20240409
  Serious: No
  Sender: FDA-Public Use
  Company Number: US-XERIS PHARMACEUTICALS-2023XER02035

PATIENT
  Age: 68 Year
  Sex: Female
  Weight: 74.83 kg

DRUGS (4)
  1. GVOKE [Suspect]
     Active Substance: GLUCAGON
     Indication: Hypoglycaemia
     Dosage: 1.0 MG, ONCE IN THE RIGHT UPPER ARM NEAR SHOULDER
     Dates: start: 20230727
  2. GLUCAGON [Suspect]
     Active Substance: GLUCAGON\GLUCAGON HYDROCHLORIDE\WATER
     Indication: Hypoglycaemia
  3. INSULIN NOS [Concomitant]
     Active Substance: INSULIN NOS
     Dosage: VIA INSULIN PUMP
  4. UNSPECIFIED CONTINUOUS GLUCOSE MONITOR [Concomitant]

REACTIONS (2)
  - Device delivery system issue [Unknown]
  - Exposure via skin contact [Unknown]

NARRATIVE: CASE EVENT DATE: 20230727
